FAERS Safety Report 9225614 (Version 1)
Quarter: 2013Q2

REPORT INFORMATION
  Report Type: Spontaneous
  Country: US (occurrence: None)
  Receive Date: 20130410
  Receipt Date: 20130410
  Transmission Date: 20140414
  Serious: No
  Sender: FDA-Public Use
  Company Number: None

PATIENT
  Age: 41 Year
  Sex: Female
  Weight: 69.85 kg

DRUGS (1)
  1. MONTELUKAST SODIUM [Suspect]
     Indication: ASTHMA
     Dosage: 10MG DAILY PO?MONTELUKAST SODIUM 10 MG TAKEN DAILY AT BEDTIME.
     Route: 048
     Dates: start: 20121010, end: 20130409

REACTIONS (5)
  - Dyspnoea [None]
  - Pruritus [None]
  - Productive cough [None]
  - Hypersensitivity [None]
  - Product substitution issue [None]
